FAERS Safety Report 7083832-3 (Version None)
Quarter: 2010Q4

REPORT INFORMATION
  Report Type: 
  Country: None (occurrence: None)
  Receive Date: 20101103
  Receipt Date: 20101103
  Transmission Date: 20110411
  Serious: Yes (Hospitalization)
  Sender: FDA-Public Use
  Company Number: None

PATIENT
  Age: 67 Year
  Sex: Male
  Weight: 77 kg

DRUGS (1)
  1. HEPARIN SODIUM 1,000 UNITS IN SODIUM CHLORIDE 0.9% [Suspect]
     Indication: HEART VALVE REPLACEMENT
     Dates: start: 20091204, end: 20091206

REACTIONS (2)
  - CONTUSION [None]
  - HAEMATOMA [None]
